FAERS Safety Report 4896038-0 (Version None)
Quarter: 2005Q4

REPORT INFORMATION
  Report Type: 
  Country: None (occurrence: None)
  Receive Date: 20051220
  Receipt Date: 20050617
  Transmission Date: 20060501
  Serious: Yes (Other)
  Sender: FDA-Public Use
  Company Number: KDL139098

PATIENT
  Age: 56 Year
  Sex: Female

DRUGS (3)
  1. ENBREL [Suspect]
     Indication: RHEUMATOID ARTHRITIS
     Dosage: 50 MG, 1 IN 1 WEEKS, SC
     Route: 058
     Dates: start: 19990301
  2. HYDROXYCHLOROQUINE SULFATE [Concomitant]
  3. SULFASALAZINE [Concomitant]

REACTIONS (2)
  - ACTINOMYCOTIC PULMONARY INFECTION [None]
  - MYCOBACTERIUM AVIUM COMPLEX INFECTION [None]
